FAERS Safety Report 9198622 (Version 1)
Quarter: 2013Q1

REPORT INFORMATION
  Report Type: Spontaneous
  Country: IT (occurrence: IT)
  Receive Date: 20130329
  Receipt Date: 20130329
  Transmission Date: 20140127
  Serious: Yes (Other)
  Sender: FDA-Public Use
  Company Number: IT-JNJFOC-20130312388

PATIENT
  Sex: Female

DRUGS (1)
  1. INVEGA [Suspect]
     Indication: PRODUCT USED FOR UNKNOWN INDICATION
     Dosage: INITIATED ABOUT 2 MONTHS BEFORE
     Route: 048

REACTIONS (2)
  - Hallucination [Unknown]
  - Obsessive thoughts [Unknown]
